FAERS Safety Report 4949738-8 (Version None)
Quarter: 2006Q1

REPORT INFORMATION
  Report Type: 
  Country: None (occurrence: None)
  Receive Date: 20060321
  Receipt Date: 20051003
  Transmission Date: 20060701
  Serious: Yes (Disabling)
  Sender: FDA-Public Use
  Company Number: US-MERCK-0510USA02768

PATIENT
  Sex: Female

DRUGS (3)
  1. VIOXX [Suspect]
     Route: 048
     Dates: start: 20030401, end: 20030601
  2. CELEBREX [Suspect]
     Route: 048
     Dates: start: 19990101, end: 20030101
  3. BEXTRA [Suspect]
     Route: 048
     Dates: start: 20011101, end: 20030101

REACTIONS (1)
  - MYOCARDIAL INFARCTION [None]
